FAERS Safety Report 9955546 (Version 1)
Quarter: 2014Q1

REPORT INFORMATION
  Report Type: Report from Study
  Country: US (occurrence: US)
  Receive Date: 20140304
  Receipt Date: 20140304
  Transmission Date: 20141002
  Serious: No
  Sender: FDA-Public Use
  Company Number: US-ABBVIE-13P-163-1084207-00

PATIENT
  Age: 66 Year
  Sex: Female
  Weight: 104.42 kg

DRUGS (12)
  1. HUMIRA [Suspect]
     Indication: RHEUMATOID ARTHRITIS
     Route: 058
     Dates: start: 20130423
  2. METHOTREXATE [Concomitant]
     Indication: RHEUMATOID ARTHRITIS
     Dosage: 8 TABLETS WEEKLY
     Dates: start: 201112, end: 201303
  3. METHOTREXATE [Concomitant]
     Dosage: 6 TABLETS WEEKLY
     Dates: start: 201303
  4. FOLIC ACID [Concomitant]
     Indication: VITAMIN SUPPLEMENTATION
     Dates: start: 201112
  5. HYDROXYCHLOROQUINE [Concomitant]
     Indication: RHEUMATOID ARTHRITIS
  6. LISINOPRIL [Concomitant]
     Indication: HYPERTENSION
  7. LASIX [Concomitant]
     Indication: LOCAL SWELLING
  8. PRAVASTATIN [Concomitant]
     Indication: BLOOD CHOLESTEROL INCREASED
  9. PREDNISONE [Concomitant]
     Indication: RHEUMATOID ARTHRITIS
  10. PROPANOLOL [Concomitant]
     Indication: RESTLESSNESS
     Dosage: AT NIGHT AS REQUIRED
  11. ASPIRIN [Concomitant]
     Indication: CARDIAC DISORDER
  12. OXYCODONE [Concomitant]
     Indication: ARTHRALGIA

REACTIONS (1)
  - Drug ineffective [Not Recovered/Not Resolved]
